FAERS Safety Report 20970133 (Version 2)
Quarter: 2022Q3

REPORT INFORMATION
  Report Type: Spontaneous
  Country: US (occurrence: US)
  Receive Date: 20220616
  Receipt Date: 20220812
  Transmission Date: 20221027
  Serious: No
  Sender: FDA-Public Use
  Company Number: US-SA-SAC20220603000927

PATIENT
  Age: 49 Year
  Sex: Female
  Weight: 129 kg

DRUGS (2)
  1. AUBAGIO [Suspect]
     Active Substance: TERIFLUNOMIDE
     Indication: Multiple sclerosis
     Dosage: 14 MG, QD
     Route: 048
  2. CAFFEINE [Concomitant]
     Active Substance: CAFFEINE
     Dosage: UNK MG

REACTIONS (1)
  - Alopecia [Not Recovered/Not Resolved]
